FAERS Safety Report 7054746-X (Version None)
Quarter: 2010Q4

REPORT INFORMATION
  Report Type: 
  Country: None (occurrence: None)
  Receive Date: 20101018
  Receipt Date: 20101012
  Transmission Date: 20110411
  Serious: Yes (Life-Threatening, Hospitalization)
  Sender: FDA-Public Use
  Company Number: 2010SP050488

PATIENT
  Age: 53 Year
  Sex: Female

DRUGS (2)
  1. PEG-INTRON [Suspect]
     Indication: HEPATITIS C
     Dosage: 150 MCG;QW;SC
     Route: 058
     Dates: start: 20100108, end: 20100901
  2. RIBASPHERE [Suspect]
     Indication: HEPATITIS C
     Dates: start: 20100108, end: 20100901

REACTIONS (2)
  - ORGANISING PNEUMONIA [None]
  - PNEUMONITIS [None]
